FAERS Safety Report 5828601-4 (Version None)
Quarter: 2008Q3

REPORT INFORMATION
  Report Type: 
  Country: None (occurrence: None)
  Receive Date: 20080731
  Receipt Date: 20080724
  Transmission Date: 20090109
  Serious: Yes (Life-Threatening, Other)
  Sender: FDA-Public Use
  Company Number: JP-BRISTOL-MYERS SQUIBB COMPANY-14240147

PATIENT
  Age: 49 Year
  Sex: Male
  Weight: 76 kg

DRUGS (15)
  1. ABILIFY [Suspect]
     Indication: SCHIZOPHRENIA
     Route: 048
     Dates: start: 20080124, end: 20080615
  2. EPHEDRA [Concomitant]
     Dates: start: 20080614
  3. HALOPERIDOL [Concomitant]
  4. MAGLAX [Concomitant]
     Dosage: TAB
  5. BIPERIDEN HYDROCHLORIDE TAB [Concomitant]
  6. ZOTEPINE [Concomitant]
  7. BASEN [Concomitant]
     Dosage: TAB
  8. SILECE [Concomitant]
  9. TRIAZOLAM [Concomitant]
     Dosage: TAB
  10. VALPROATE SODIUM [Concomitant]
  11. CARBAMAZEPINE [Concomitant]
  12. LORAZEPAM [Concomitant]
     Dosage: TAB
  13. FAMOTIDINE TABS [Concomitant]
     Dosage: FAMOTIDINE D
  14. NITRODERM [Concomitant]
  15. PHENOTHIAZINE [Concomitant]

REACTIONS (3)
  - ACUTE RESPIRATORY DISTRESS SYNDROME [None]
  - HEPATOCELLULAR INJURY [None]
  - INTERSTITIAL LUNG DISEASE [None]
